FAERS Safety Report 4395447-6 (Version None)
Quarter: 2004Q3

REPORT INFORMATION
  Report Type: 
  Country: None (occurrence: None)
  Receive Date: 20040713
  Receipt Date: 20040701
  Transmission Date: 20050211
  Serious: Yes (Hospitalization, Other)
  Sender: FDA-Public Use
  Company Number: PHBS2004US08793

PATIENT
  Age: 44 Year
  Sex: Male

DRUGS (5)
  1. SANDIMMUNE [Suspect]
     Indication: RENAL TRANSPLANT
     Dosage: 300 MG AM AND 200 MG PM
     Route: 065
  2. PREDNISONE [Concomitant]
     Dosage: 15 MG/DAY
  3. AZATHIOPRINE [Concomitant]
     Dosage: 150 MG/DAY
  4. GENTAMICIN [Suspect]
     Indication: ENDOCARDITIS STAPHYLOCOCCAL
  5. RIFAMPIN [Suspect]
     Indication: ENDOCARDITIS STAPHYLOCOCCAL
     Route: 065

REACTIONS (15)
  - AORTIC VALVE INCOMPETENCE [None]
  - AORTIC VALVE REPLACEMENT [None]
  - BLOOD CREATININE INCREASED [None]
  - BLOOD CULTURE POSITIVE [None]
  - CARDIAC MURMUR [None]
  - CARDIAC VALVE VEGETATION [None]
  - CHILLS [None]
  - DRUG INTERACTION [None]
  - ENDOCARDITIS STAPHYLOCOCCAL [None]
  - EXERCISE TOLERANCE DECREASED [None]
  - MITRAL VALVE INCOMPETENCE [None]
  - PYREXIA [None]
  - URETERAL NECROSIS [None]
  - URETERIC REPAIR [None]
  - WHITE BLOOD CELL COUNT INCREASED [None]
